FAERS Safety Report 11023560 (Version 2)
Quarter: 2015Q2

REPORT INFORMATION
  Report Type: Spontaneous
  Country: US (occurrence: US)
  Receive Date: 20150413
  Receipt Date: 20150525
  Transmission Date: 20150821
  Serious: No
  Sender: FDA-Public Use
  Company Number: US-JNJFOC-20110500193

PATIENT
  Sex: Male

DRUGS (2)
  1. LEVAQUIN [Suspect]
     Active Substance: LEVOFLOXACIN
     Indication: PRODUCT USED FOR UNKNOWN INDICATION
     Route: 048
     Dates: start: 20090302, end: 20090710
  2. LEVAQUIN [Suspect]
     Active Substance: LEVOFLOXACIN
     Indication: COLON OPERATION
     Route: 048
     Dates: start: 20090302, end: 20090710

REACTIONS (1)
  - Tendon calcification [Unknown]

NARRATIVE: CASE EVENT DATE: 2009
